FAERS Safety Report 8201909 (Version 2)
Quarter: 2012Q4

REPORT INFORMATION
  Report Type: 
  Country: US (occurrence: US)
  Receive Date: 20111027
  Receipt Date: 20121026
  Transmission Date: 20130627
  Serious: Yes (Hospitalization)
  Sender: FDA-Public Use
  Company Number: US-BAYER-2011-100413

PATIENT
  Age: 25 Year
  Sex: Female
  Weight: 74.83 kg

DRUGS (18)
  1. YAZ [Suspect]
     Indication: CONTRACEPTION
     Dosage: UNK
     Dates: start: 200702, end: 200706
  2. YAZ [Suspect]
     Indication: PREMENSTRUAL SYNDROME
  3. YAZ [Suspect]
     Indication: HEAVY PERIODS
  4. PROAIR HFA [Concomitant]
     Indication: ASTHMA
     Dosage: 90 ?g, UNK
     Route: 045
     Dates: start: 20070317, end: 20070429
  5. HYDROCORTISONE [Concomitant]
     Indication: HIVES
     Dosage: UNK
     Route: 061
     Dates: start: 20070420, end: 20070517
  6. ZYRTEC [Concomitant]
     Indication: MULTIPLE ALLERGIES
     Dosage: 5 mg, UNK
     Route: 048
     Dates: start: 20070503
  7. AMPICILLIN [Concomitant]
     Dosage: 500 mg, one TID for 7 days
     Route: 048
     Dates: start: 20070507
  8. ALBUTEROL INHALER [Concomitant]
     Indication: ASTHMA
     Dosage: UNK
     Dates: start: 20070517
  9. PREDNISONE [Concomitant]
     Indication: HIVES
     Dosage: 20 mg, UNK
     Route: 048
     Dates: start: 20070518
  10. FAMOTIDINE [Concomitant]
     Dosage: 20 mg, UNK
     Route: 048
     Dates: start: 20070518
  11. NAPROXEN [Concomitant]
     Indication: FINGER SPRAIN
     Dosage: 500 mg, BID
     Route: 048
     Dates: start: 20070521
  12. NAPROXEN [Concomitant]
     Indication: HAND PAIN
  13. TERCONAZOLE [Concomitant]
     Dosage: UNK
     Dates: start: 20070521
  14. SOLUMEDROL [Concomitant]
  15. PEPCID [Concomitant]
     Dosage: 20 mg, UNK
  16. PENICILLIN [Concomitant]
     Dosage: 20 mg, UNK
     Route: 048
  17. ORTHO-CYCLEN [Concomitant]
  18. VITAMIN B12 NOS [Concomitant]

REACTIONS (6)
  - Pulmonary embolism [None]
  - Pain [None]
  - Fear [None]
  - Emotional distress [None]
  - Anxiety [None]
  - Psychological trauma [None]
